FAERS Safety Report 8358762-7 (Version None)
Quarter: 2012Q2

REPORT INFORMATION
  Report Type: 
  Country: None (occurrence: None)
  Receive Date: 20120514
  Receipt Date: 20120508
  Transmission Date: 20120825
  Serious: Yes (Other)
  Sender: FDA-Public Use
  Company Number: DE-BAYER-2012-029852

PATIENT
  Age: 72 Year
  Sex: Male

DRUGS (5)
  1. PRAVASTATIN [Concomitant]
  2. AMLODIPINE [Concomitant]
  3. INDAPAMIDE [Concomitant]
  4. NEBIVOLOL [Concomitant]
  5. BETASERON [Suspect]
     Indication: MULTIPLE SCLEROSIS
     Dosage: UNK

REACTIONS (9)
  - ARTHRALGIA [None]
  - PRURITUS [None]
  - PLATELET DISORDER [None]
  - PLATELET COUNT DECREASED [None]
  - HAEMORRHAGIC DIATHESIS [None]
  - PAIN [None]
  - INJECTION SITE HAEMATOMA [None]
  - INFLUENZA LIKE ILLNESS [None]
  - THROMBOCYTOPENIA [None]
